FAERS Safety Report 5851305-9 (Version None)
Quarter: 2008Q3

REPORT INFORMATION
  Report Type: 
  Country: None (occurrence: None)
  Receive Date: 20080731
  Receipt Date: 20080506
  Transmission Date: 20090109
  Serious: No
  Sender: FDA-Public Use
  Company Number: 2006PV011738

PATIENT
  Age: 78 Year
  Sex: Male
  Weight: 102 kg

DRUGS (15)
  1. EXENATIDE(EXENATIDE) PEN,DISPOSABLE [Suspect]
     Indication: TYPE 2 DIABETES MELLITUS
     Dosage: 10 UG, 2/D, SUBCUTANEOUS, 5 UG, 2/D, SUBCUTANEOUS, 10 UG, 2/D, SUBCUTANEOUS
     Route: 058
     Dates: start: 20050101
  2. EXENATIDE(EXENATIDE) PEN,DISPOSABLE [Suspect]
     Indication: TYPE 2 DIABETES MELLITUS
     Dosage: 10 UG, 2/D, SUBCUTANEOUS, 5 UG, 2/D, SUBCUTANEOUS, 10 UG, 2/D, SUBCUTANEOUS
     Route: 058
     Dates: start: 20050914
  3. EXENATIDE PEN, DISPOSABLE DEVICE (EXENATIDE PEN) PEN,DISPOSABLE [Concomitant]
  4. AMARYL [Concomitant]
  5. LASIX [Concomitant]
  6. POTASSIUM CHLORIDE [Concomitant]
  7. PROSCAR [Concomitant]
  8. ALTACE [Concomitant]
  9. OMEPRAZOLE [Concomitant]
  10. MUCINEX [Concomitant]
  11. ADVAIR DISKUS 100/50 [Concomitant]
  12. SPIRIVA [Concomitant]
  13. ALBUTEROL [Concomitant]
  14. ALLOPURINOL [Concomitant]
  15. MULTIVITAMIN [Concomitant]

REACTIONS (8)
  - BLOOD GLUCOSE DECREASED [None]
  - BLOOD GLUCOSE INCREASED [None]
  - BLOOD URIC ACID INCREASED [None]
  - DECREASED APPETITE [None]
  - GOUT [None]
  - NAUSEA [None]
  - OESOPHAGEAL CANDIDIASIS [None]
  - WEIGHT DECREASED [None]
